FAERS Safety Report 6792763-5 (Version None)
Quarter: 2010Q2

REPORT INFORMATION
  Report Type: 
  Country: None (occurrence: None)
  Receive Date: 20100624
  Receipt Date: 20081008
  Transmission Date: 20101027
  Serious: Yes (Other)
  Sender: FDA-Public Use
  Company Number: US-PFIZER INC-2008084834

PATIENT
  Sex: Female
  Weight: 64 kg

DRUGS (5)
  1. MEDROXYPROGESTERONE ACETATE [Suspect]
     Indication: CONTRACEPTION
     Route: 030
     Dates: end: 20080825
  2. ALBUTEROL [Concomitant]
  3. CLARITIN [Concomitant]
     Indication: HYPERSENSITIVITY
  4. NAPROSYN [Concomitant]
  5. CITRACAL [Concomitant]

REACTIONS (2)
  - DRUG INEFFECTIVE [None]
  - UNINTENDED PREGNANCY [None]
